FAERS Safety Report 12853141 (Version 1)
Quarter: 2016Q4

REPORT INFORMATION
  Report Type: Spontaneous
  Country: US (occurrence: US)
  Receive Date: 20161016
  Receipt Date: 20161016
  Transmission Date: 20170207
  Serious: Yes (Other)
  Sender: FDA-Public Use
  Company Number: None

PATIENT
  Age: 71 Year
  Sex: Male
  Weight: 90 kg

DRUGS (1)
  1. TOPAMAX [Suspect]
     Active Substance: TOPIRAMATE
     Indication: FIBROMYALGIA
     Dosage: 120 TABLET(S) TWICE A DAY OTHER?
     Route: 048
     Dates: start: 20160909, end: 20161015

REACTIONS (1)
  - Visual impairment [None]

NARRATIVE: CASE EVENT DATE: 20161016
